FAERS Safety Report 11566801 (Version 1)
Quarter: 2015Q3

REPORT INFORMATION
  Report Type: Spontaneous
  Country: IT (occurrence: IT)
  Receive Date: 20150929
  Receipt Date: 20150929
  Transmission Date: 20151125
  Serious: Yes (Death, Hospitalization)
  Sender: FDA-Public Use
  Company Number: IT-SUN PHARMACEUTICAL INDUSTRIES LTD-13SUNGE09P

PATIENT
  Age: 82 Year
  Sex: Female

DRUGS (1)
  1. GEMCITABINE [Suspect]
     Active Substance: GEMCITABINE\GEMCITABINE HYDROCHLORIDE
     Indication: PANCREATIC CARCINOMA METASTATIC
     Dosage: 1000 MG/MQ EVERY 7 DAYS FOR THREE TIMES EACH CYCLE TOTAL DOSE OF 10.8 GR
     Route: 042

REACTIONS (4)
  - Pain [Unknown]
  - Paraesthesia [Unknown]
  - Skin necrosis [Recovering/Resolving]
  - Anaemia [Unknown]
